FAERS Safety Report 16022234 (Version 2)
Quarter: 2019Q2

REPORT INFORMATION
  Report Type: Spontaneous
  Country: JP (occurrence: JP)
  Receive Date: 20190301
  Receipt Date: 20190409
  Transmission Date: 20190711
  Serious: Yes (Death, Hospitalization, Other)
  Sender: FDA-Public Use
  Company Number: JP-SAKK-2019SA055170AA

PATIENT
  Age: 78 Year
  Sex: Female

DRUGS (5)
  1. METHOTREXATE. [Suspect]
     Active Substance: METHOTREXATE
     Indication: RHEUMATOID ARTHRITIS
     Dosage: 4 MG, BID
     Route: 048
     Dates: start: 20140902, end: 20190202
  2. EDIROL [Suspect]
     Active Substance: ELDECALCITOL
     Indication: OSTEOPOROSIS
     Dosage: 0.5 UG, QD
     Route: 048
     Dates: start: 20141213, end: 20190202
  3. IRSOGLADINE MALEATE [Suspect]
     Active Substance: IRSOGLADINE MALEATE
     Indication: GASTRITIS
     Dosage: 2 MG, BID
     Route: 048
     Dates: start: 20141002, end: 20190202
  4. KEVZARA [Suspect]
     Active Substance: SARILUMAB
     Indication: RHEUMATOID ARTHRITIS
     Dosage: 200 MG PER DOSE
     Route: 058
     Dates: start: 201812, end: 201901
  5. FOLIC ACID. [Suspect]
     Active Substance: FOLIC ACID
     Indication: PRODUCT USED FOR UNKNOWN INDICATION
     Dosage: 5 MG, QD
     Route: 048
     Dates: start: 20140902, end: 20190202

REACTIONS (2)
  - Compression fracture [Not Recovered/Not Resolved]
  - Pancytopenia [Fatal]

NARRATIVE: CASE EVENT DATE: 201812
